FAERS Safety Report 6674032-7 (Version None)
Quarter: 2010Q2

REPORT INFORMATION
  Report Type: 
  Country: None (occurrence: None)
  Receive Date: 20100409
  Receipt Date: 20100329
  Transmission Date: 20101027
  Serious: Yes (Other)
  Sender: FDA-Public Use
  Company Number: GB-PFIZER INC-2010040089

PATIENT
  Age: 25 Year
  Sex: Female

DRUGS (5)
  1. SILDENAFIL CITRATE [Suspect]
     Indication: PULMONARY HYPERTENSION
     Dosage: UNK
     Route: 048
     Dates: start: 20060101
  2. FENTANYL [Suspect]
     Indication: GENERAL ANAESTHESIA
     Dosage: UNK
     Dates: start: 20070101, end: 20070101
  3. ETOMIDATE [Suspect]
     Indication: GENERAL ANAESTHESIA
     Dosage: UNK
     Dates: start: 20070101, end: 20070101
  4. SUXAMETHONIUM [Suspect]
     Indication: GENERAL ANAESTHESIA
     Dosage: UNK
     Dates: start: 20070101, end: 20070101
  5. VECURONIUM BROMIDE [Suspect]
     Indication: GENERAL ANAESTHESIA
     Dosage: UNK
     Dates: start: 20070101, end: 20070101

REACTIONS (2)
  - BRADYCARDIA [None]
  - CARDIOVASCULAR DISORDER [None]
